FAERS Safety Report 5829572 (Version 18)
Quarter: 2013Q4

REPORT INFORMATION
  Report Type: Spontaneous
  Country: US (occurrence: US)
  Receive Date: 20050701
  Receipt Date: 20131125
  Transmission Date: 20140711
  Serious: Yes (Death, Other)
  Sender: FDA-Public Use
  Company Number: PHEH2005US07182

PATIENT
  Age: 65 Year
  Sex: Female

DRUGS (12)
  1. AREDIA [Suspect]
     Route: 042
     Dates: start: 1999, end: 2001
  2. ZOMETA [Suspect]
     Indication: BREAST CANCER METASTATIC
     Dosage: 4 MG
     Route: 042
     Dates: start: 200201, end: 200808
  3. XELODA [Concomitant]
  4. PREVACID [Concomitant]
  5. ZESTRIL [Concomitant]
  6. ADRIAMYCIN [Concomitant]
     Dosage: 40 MG, QW
     Route: 042
  7. ALOXI [Concomitant]
  8. COUMADIN [Concomitant]
     Dosage: 2.5 MG, QD
  9. DECADRON [Concomitant]
  10. FLUCONAZOLE [Concomitant]
     Dosage: 100 MG, QD
  11. OMEPRAZOLE [Concomitant]
  12. NAVELBINE [Concomitant]

REACTIONS (96)
  - Death [Fatal]
  - Osteonecrosis of jaw [Unknown]
  - Osteomyelitis [Unknown]
  - Infection [Unknown]
  - Osteolysis [Unknown]
  - Pain [Unknown]
  - Deformity [Unknown]
  - Oral discomfort [Unknown]
  - Mucosal ulceration [Recovering/Resolving]
  - Gingival pain [Unknown]
  - Gingival swelling [Unknown]
  - Intervertebral disc protrusion [Recovered/Resolved]
  - Thyroid cancer [Recovered/Resolved]
  - Second primary malignancy [Unknown]
  - Pulmonary hypertension [Unknown]
  - Arteriosclerosis coronary artery [Unknown]
  - Metastases to liver [Unknown]
  - Metastases to central nervous system [Unknown]
  - Metastases to spine [Unknown]
  - Bone pain [Unknown]
  - Anaemia [Unknown]
  - Gait disturbance [Unknown]
  - Neuropathy peripheral [Unknown]
  - Muscular weakness [Unknown]
  - Back pain [Unknown]
  - Polyneuropathy [Unknown]
  - Intervertebral disc degeneration [Unknown]
  - Stomatitis [Unknown]
  - Bursitis [Unknown]
  - Neck pain [Unknown]
  - Spondylolisthesis [Unknown]
  - Arthropathy [Unknown]
  - Spinal disorder [Unknown]
  - Pelvic pain [Unknown]
  - Intervertebral disc space narrowing [Unknown]
  - Osteosclerosis [Unknown]
  - Exostosis [Unknown]
  - Metastases to bone [Unknown]
  - Cough [Unknown]
  - Osteoarthritis [Unknown]
  - Arthralgia [Unknown]
  - Myalgia [Unknown]
  - Sciatica [Unknown]
  - Metastatic neoplasm [Unknown]
  - Cellulitis [Unknown]
  - Lung infiltration [Unknown]
  - Atelectasis [Unknown]
  - Pleural effusion [Unknown]
  - Pulmonary embolism [Unknown]
  - Lumbar spinal stenosis [Unknown]
  - Device related infection [Unknown]
  - Mastoid effusion [Unknown]
  - Cerebral atrophy [Unknown]
  - Urinary tract infection [Unknown]
  - Vertebral foraminal stenosis [Unknown]
  - Hyponatraemia [Unknown]
  - Left ventricular hypertrophy [Unknown]
  - Cardiac failure congestive [Unknown]
  - Mitral valve incompetence [Unknown]
  - Oral cavity fistula [Unknown]
  - Fistula discharge [Unknown]
  - Upper respiratory tract infection [Unknown]
  - Dizziness [Unknown]
  - Right atrial dilatation [Unknown]
  - Sinus tachycardia [Unknown]
  - Hilar lymphadenopathy [Unknown]
  - Stress fracture [Unknown]
  - Foot fracture [Unknown]
  - Injury [Unknown]
  - Rib fracture [Unknown]
  - Metastases to lymph nodes [Unknown]
  - Metastases to retroperitoneum [Unknown]
  - Cataract [Unknown]
  - Hyperlipidaemia [Unknown]
  - Depression [Unknown]
  - Musculoskeletal pain [Unknown]
  - Dyspnoea [Unknown]
  - Synovitis [Unknown]
  - Pain in extremity [Unknown]
  - Local swelling [Unknown]
  - Bone marrow failure [Unknown]
  - Dehydration [Unknown]
  - Pancytopenia [Unknown]
  - Mucosal inflammation [Unknown]
  - Alopecia [Unknown]
  - Fall [Unknown]
  - Failure to thrive [Unknown]
  - Swelling face [Unknown]
  - Deep vein thrombosis [Unknown]
  - Tooth infection [Unknown]
  - Diarrhoea [Unknown]
  - Rash [Unknown]
  - Upper limb fracture [Unknown]
  - Osteopenia [Unknown]
  - Tinea pedis [Unknown]
  - Gastrooesophageal reflux disease [Unknown]
